FAERS Safety Report 12204868 (Version 1)
Quarter: 2016Q1

REPORT INFORMATION
  Report Type: Spontaneous
  Country: AR (occurrence: AR)
  Receive Date: 20160323
  Receipt Date: 20160323
  Transmission Date: 20160526
  Serious: Yes (Other)
  Sender: FDA-Public Use
  Company Number: AR-AMGEN-ARGSP2015051775

PATIENT
  Age: 58 Year
  Sex: Female

DRUGS (1)
  1. ENBREL [Suspect]
     Active Substance: ETANERCEPT
     Indication: RHEUMATOID ARTHRITIS
     Dosage: 50 MG, EVERY 15 DAYS
     Route: 065
     Dates: start: 20060601

REACTIONS (12)
  - Cough [Recovered/Resolved]
  - Foot deformity [Not Recovered/Not Resolved]
  - Nervous system disorder [Recovering/Resolving]
  - Nasopharyngitis [Recovered/Resolved]
  - Paraesthesia [Not Recovered/Not Resolved]
  - Bursitis [Recovering/Resolving]
  - Product use issue [Unknown]
  - Discomfort [Not Recovered/Not Resolved]
  - Myalgia [Not Recovered/Not Resolved]
  - Hypersensitivity [Recovered/Resolved]
  - Mobility decreased [Not Recovered/Not Resolved]
  - Pain in extremity [Not Recovered/Not Resolved]

NARRATIVE: CASE EVENT DATE: 20060601
